FAERS Safety Report 7339032-2 (Version None)
Quarter: 2011Q1

REPORT INFORMATION
  Report Type: 
  Country: None (occurrence: None)
  Receive Date: 20110308
  Receipt Date: 20110223
  Transmission Date: 20110831
  Serious: Yes (Hospitalization, Other)
  Sender: FDA-Public Use
  Company Number: FR-ELI_LILLY_AND_COMPANY-FR201102007488

PATIENT
  Sex: Female

DRUGS (14)
  1. DI-ANTALVIC [Concomitant]
     Dosage: UNK, AS NEEDED
     Route: 048
  2. SERETIDE [Concomitant]
     Dosage: 250 MG, EVERY 6 HRS
  3. OSTRAM D3 [Concomitant]
  4. TORENTAL [Concomitant]
     Dosage: 400 MG, 2/D
     Route: 048
     Dates: start: 20090101, end: 20090608
  5. LEXOMIL [Concomitant]
     Dosage: 6 MG, EVERY 8 HRS
     Route: 048
     Dates: start: 20090101, end: 20090608
  6. ARIXTRA [Concomitant]
     Dosage: 2.5 MG, DAILY (1/D)
  7. ATARAX [Concomitant]
     Dosage: 100 MG, 2/D
  8. SPIRIVA [Concomitant]
  9. CORTANCYL [Concomitant]
     Dosage: 5 MG, DAILY (1/D)
  10. LYRICA [Concomitant]
     Dosage: 100 MG, UNK
     Route: 048
     Dates: start: 20090101, end: 20090608
  11. DITROPAN [Concomitant]
     Dosage: 25 MG, DAILY (1/D)
     Route: 048
     Dates: start: 20090101, end: 20090608
  12. CYMBALTA [Suspect]
     Dosage: 30 MG, DAILY (1/D)
     Route: 048
     Dates: start: 20090401, end: 20090608
  13. POLARAMINE [Concomitant]
     Dosage: 2 MG, EVERY 8 HRS
  14. NEXIUM [Concomitant]
     Dosage: 20 MG, DAILY (1/D)

REACTIONS (5)
  - HYPOCHROMIC ANAEMIA [None]
  - JAUNDICE [None]
  - HEPATITIS CHOLESTATIC [None]
  - PYREXIA [None]
  - ESCHERICHIA BACTERAEMIA [None]
